FAERS Safety Report 5876107-9 (Version None)
Quarter: 2008Q3

REPORT INFORMATION
  Report Type: 
  Country: None (occurrence: None)
  Receive Date: 20080910
  Receipt Date: 20080828
  Transmission Date: 20090109
  Serious: Yes (Other)
  Sender: FDA-Public Use
  Company Number: US-AVENTIS-200815609US

PATIENT
  Sex: Female

DRUGS (1)
  1. APIDRA [Suspect]
     Indication: DIABETES MELLITUS
     Dosage: DOSE: VIA PUMP
     Dates: start: 20060101

REACTIONS (4)
  - BLOOD GLUCOSE INCREASED [None]
  - KETOSIS [None]
  - STOMACH DISCOMFORT [None]
  - VOMITING [None]
